FAERS Safety Report 9473480 (Version 2)
Quarter: 2014Q3

REPORT INFORMATION
  Report Type: Spontaneous
  Country: US (occurrence: US)
  Receive Date: 20130823
  Receipt Date: 20140808
  Transmission Date: 20150326
  Serious: Yes (Hospitalization)
  Sender: FDA-Public Use
  Company Number: US-BRISTOL-MYERS SQUIBB COMPANY-19028653

PATIENT
  Age: 20 Year
  Sex: Male
  Weight: 72.56 kg

DRUGS (17)
  1. TYLENOL [Concomitant]
     Active Substance: ACETAMINOPHEN
  2. CYTARABINE. [Concomitant]
     Active Substance: CYTARABINE
  3. MIRALAX [Concomitant]
     Active Substance: POLYETHYLENE GLYCOL 3350
  4. DAUNORUBICIN [Concomitant]
     Active Substance: DAUNORUBICIN
  5. ETOPOSIDE. [Concomitant]
     Active Substance: ETOPOSIDE
  6. ZOFRAN [Concomitant]
     Active Substance: ONDANSETRON HYDROCHLORIDE
  7. DOXORUBICIN [Concomitant]
     Active Substance: DOXORUBICIN
  8. PEG-L-ASPARAGINASE [Concomitant]
     Active Substance: PEGASPARGASE
  9. IFOSFAMIDE. [Concomitant]
     Active Substance: IFOSFAMIDE
  10. METHOTREXATE [Concomitant]
     Active Substance: METHOTREXATE
  11. DOXORUBICIN [Concomitant]
     Active Substance: DOXORUBICIN
  12. SPRYCEL [Suspect]
     Active Substance: DASATINIB
     Indication: ACUTE LYMPHOCYTIC LEUKAEMIA
     Route: 048
     Dates: start: 201305
  13. BACTRIM DS [Concomitant]
     Active Substance: SULFAMETHOXAZOLE\TRIMETHOPRIM
  14. ASPARAGINASE [Concomitant]
     Active Substance: ASPARAGINASE
  15. GABAPENTIN. [Concomitant]
     Active Substance: GABAPENTIN
  16. PREDNISONE. [Suspect]
     Active Substance: PREDNISONE
  17. NEULASTA [Concomitant]
     Active Substance: PEGFILGRASTIM

REACTIONS (8)
  - Heart rate increased [Not Recovered/Not Resolved]
  - Febrile neutropenia [Recovering/Resolving]
  - Gastrooesophageal reflux disease [Not Recovered/Not Resolved]
  - Weight increased [Not Recovered/Not Resolved]
  - Hypoaesthesia [Unknown]
  - Face oedema [Not Recovered/Not Resolved]
  - Clumsiness [Unknown]
  - Fluid retention [Not Recovered/Not Resolved]

NARRATIVE: CASE EVENT DATE: 201306
